FAERS Safety Report 12803782 (Version 3)
Quarter: 2016Q4

REPORT INFORMATION
  Report Type: Report from Study
  Country: BR (occurrence: BR)
  Receive Date: 20161003
  Receipt Date: 20161108
  Transmission Date: 20170207
  Serious: Yes (Hospitalization, Other)
  Sender: FDA-Public Use
  Company Number: PHHY2016BR134026

PATIENT
  Age: 16 Year
  Sex: Female
  Weight: 54 kg

DRUGS (4)
  1. HYDREA [Concomitant]
     Active Substance: HYDROXYUREA
     Indication: SICKLE CELL ANAEMIA
     Dosage: 1 DF, QD (1 TABLET DAILY)
     Route: 048
  2. CARDIOSOL [Concomitant]
     Active Substance: NIFEDIPINE
     Indication: CARDIAC FAILURE
     Dosage: 25 MG, QD (2 TABLETS DAILY)
     Route: 065
  3. EXJADE [Suspect]
     Active Substance: DEFERASIROX
     Indication: SICKLE CELL ANAEMIA
     Dosage: 1000 MG (4 DISPERSIBLE TABLETS DAILY OF 250MG (PREVIOUSLY REPORTED AS 2 TABLETS OF 500 MG), QD
     Route: 048
  4. FOLIC ACID. [Concomitant]
     Active Substance: FOLIC ACID
     Indication: SICKLE CELL ANAEMIA
     Dosage: 2 DF, QD (2 TABLET DAILY)
     Route: 048

REACTIONS (9)
  - Urinary tract infection [Recovered/Resolved]
  - Pain [Not Recovered/Not Resolved]
  - Haematocrit increased [Recovering/Resolving]
  - Anaemia [Recovered/Resolved]
  - Malaise [Unknown]
  - Infection [Recovered/Resolved]
  - Sickle cell anaemia with crisis [Unknown]
  - Pain [Recovered/Resolved]
  - Haematocrit decreased [Unknown]

NARRATIVE: CASE EVENT DATE: 201609
